FAERS Safety Report 13947994 (Version 1)
Quarter: 2017Q3

REPORT INFORMATION
  Report Type: Spontaneous
  Country: US (occurrence: US)
  Receive Date: 20170908
  Receipt Date: 20170908
  Transmission Date: 20171128
  Serious: No
  Sender: FDA-Public Use
  Company Number: US-PFIZER INC-2017387361

PATIENT
  Age: 77 Year
  Sex: Female
  Weight: 96.15 kg

DRUGS (1)
  1. GABAPENTIN. [Suspect]
     Active Substance: GABAPENTIN
     Dosage: UNK

REACTIONS (6)
  - Euphoric mood [Unknown]
  - Impaired driving ability [Unknown]
  - Hallucination [Unknown]
  - Weight increased [Unknown]
  - Feeling drunk [Unknown]
  - Disturbance in attention [Unknown]
